FAERS Safety Report 5788667-7 (Version None)
Quarter: 2008Q2

REPORT INFORMATION
  Report Type: 
  Country: None (occurrence: None)
  Receive Date: 20080626
  Receipt Date: 20080623
  Transmission Date: 20081010
  Serious: Yes (Life-Threatening, Hospitalization)
  Sender: FDA-Public Use
  Company Number: PHHY2008JP06600

PATIENT
  Sex: Female
  Weight: 42 kg

DRUGS (3)
  1. SLOW-K [Suspect]
     Indication: SUICIDE ATTEMPT
     Dosage: 60 G
     Route: 048
     Dates: start: 20080427
  2. SLOW-K [Suspect]
     Indication: OEDEMA
  3. ALENDRONATE SODIUM [Suspect]
     Indication: SUICIDE ATTEMPT
     Route: 048

REACTIONS (11)
  - CARDIO-RESPIRATORY ARREST [None]
  - ENDOSCOPY UPPER GASTROINTESTINAL TRACT [None]
  - GASTRIC LAVAGE [None]
  - GASTRITIS EROSIVE [None]
  - HAEMODIALYSIS [None]
  - HYPERKALAEMIA [None]
  - LOSS OF CONSCIOUSNESS [None]
  - RESUSCITATION [None]
  - SUICIDE ATTEMPT [None]
  - VENTRICULAR FIBRILLATION [None]
  - VENTRICULAR TACHYCARDIA [None]
